FAERS Safety Report 15462533 (Version 2)
Quarter: 2018Q4

REPORT INFORMATION
  Report Type: Spontaneous
  Country: RO (occurrence: RO)
  Receive Date: 20181004
  Receipt Date: 20181105
  Transmission Date: 20190204
  Serious: Yes (Death, Hospitalization, Other)
  Sender: FDA-Public Use
  Company Number: RO-ROCHE-2193478

PATIENT
  Age: 68 Year
  Sex: Male
  Weight: 95 kg

DRUGS (13)
  1. GAZYVARO [Suspect]
     Active Substance: OBINUTUZUMAB
     Dosage: DAY 2 CYCLE 1
     Route: 042
     Dates: start: 20180222
  2. GAZYVARO [Suspect]
     Active Substance: OBINUTUZUMAB
     Dosage: CYCLE 3
     Route: 042
     Dates: start: 20180508
  3. GAZYVARO [Suspect]
     Active Substance: OBINUTUZUMAB
     Dosage: CYCLE 4
     Route: 042
     Dates: start: 20180606
  4. GAZYVARO [Suspect]
     Active Substance: OBINUTUZUMAB
     Dosage: CYCLE 6
     Route: 042
     Dates: start: 20180809
  5. LEUKERAN [Concomitant]
     Active Substance: CHLORAMBUCIL
     Indication: CHRONIC LYMPHOCYTIC LEUKAEMIA
     Route: 048
     Dates: start: 20180222, end: 20180809
  6. NORMIX [Concomitant]
     Active Substance: RIFAXIMIN
     Indication: INFECTION PROPHYLAXIS
     Dosage: 4 TABLETS OF 400 MG PER DAY, 5 DAYS PER MONTH
     Route: 048
     Dates: start: 20180222, end: 20180814
  7. GAZYVARO [Suspect]
     Active Substance: OBINUTUZUMAB
     Dosage: CYCLE 2
     Route: 042
     Dates: start: 20180417
  8. GAZYVARO [Suspect]
     Active Substance: OBINUTUZUMAB
     Dosage: CYCLE 5
     Route: 042
     Dates: start: 20180704
  9. METRONIDAZOL [Concomitant]
     Active Substance: METRONIDAZOLE
     Indication: INFECTION PROPHYLAXIS
     Dosage: 4 TABLETS OF 250 MG PER DAY, 8 DAYS PER MONTH
     Route: 048
     Dates: start: 20180222, end: 20180814
  10. ACICLOVIR [Concomitant]
     Active Substance: ACYCLOVIR
     Indication: INFECTION PROPHYLAXIS
     Dosage: 5 TABLETS OF 200 MG/DAY, 8 DAYS PER MONTH
     Route: 048
     Dates: start: 20180222, end: 20180926
  11. GAZYVARO [Suspect]
     Active Substance: OBINUTUZUMAB
     Indication: CHRONIC LYMPHOCYTIC LEUKAEMIA
     Dosage: DAY 1 CYCLE 1
     Route: 042
     Dates: start: 20180220
  12. FLUCONAZOL [Concomitant]
     Active Substance: FLUCONAZOLE
     Indication: INFECTION PROPHYLAXIS
     Dosage: 2 TABLETS OF 200 MG PER DAY, 5 DAYS PER MONTH
     Route: 048
     Dates: start: 20180222, end: 20180814
  13. SUMETROLIM [Concomitant]
     Active Substance: SULFAMETHOXAZOLE\TRIMETHOPRIM
     Indication: INFECTION PROPHYLAXIS
     Dosage: 4 TABLETS OF 400/80MG PER DAY, 8 DAYS PER MONTH
     Route: 048
     Dates: start: 20180222, end: 20180926

REACTIONS (11)
  - Generalised oedema [Unknown]
  - Anaemia [Recovered/Resolved]
  - Paraesthesia [Unknown]
  - Thrombocytopenia [Recovered/Resolved]
  - Anaphylactic reaction [Recovered/Resolved]
  - Quadriplegia [Not Recovered/Not Resolved]
  - Tumour lysis syndrome [Recovered/Resolved]
  - Guillain-Barre syndrome [Fatal]
  - Blood glucose fluctuation [Unknown]
  - Renal failure [Recovered/Resolved]
  - Blood pressure fluctuation [Recovered/Resolved]

NARRATIVE: CASE EVENT DATE: 20180220
